FAERS Safety Report 24138089 (Version 4)
Quarter: 2024Q3

REPORT INFORMATION
  Report Type: Report from Study
  Country: US (occurrence: US)
  Receive Date: 20240725
  Receipt Date: 20240919
  Transmission Date: 20241016
  Serious: Yes (Hospitalization, Other)
  Sender: ABBVIE
  Company Number: US-ABBVIE-5851765

PATIENT
  Sex: Female
  Weight: 58.966 kg

DRUGS (9)
  1. CREON [Suspect]
     Active Substance: PANCRELIPASE AMYLASE\PANCRELIPASE LIPASE\PANCRELIPASE PROTEASE
     Indication: Pancreatic failure
     Dosage: FORM STRENGTH: 36000 UNIT?FREQUENCY TEXT: 2 CAP W/LIGHT MEALS, 3 CAP W/HEAVY MEALS
     Route: 048
     Dates: start: 2017
  2. ALENDRONATE [Concomitant]
     Active Substance: ALENDRONATE SODIUM
     Indication: Osteoporosis prophylaxis
     Dosage: FORM STRENGTH: 70 MILLIGRAM
  3. VITAMIN D [Concomitant]
     Active Substance: VITAMIN D NOS
     Indication: Product used for unknown indication
  4. CALCIUM CITRATE [Concomitant]
     Active Substance: CALCIUM CITRATE
     Indication: Product used for unknown indication
     Dosage: FORM STRENGTH: 1000 MILLIGRAM
  5. FISH OIL [Concomitant]
     Active Substance: FISH OIL
     Indication: Product used for unknown indication
  6. MINERALS\VITAMINS [Concomitant]
     Active Substance: MINERALS\VITAMINS
     Indication: Macular degeneration
  7. EYLEA [Concomitant]
     Active Substance: AFLIBERCEPT
     Indication: Macular degeneration
  8. EYLEA [Concomitant]
     Active Substance: AFLIBERCEPT
     Indication: Macular degeneration
  9. INDAPAMIDE [Concomitant]
     Active Substance: INDAPAMIDE
     Indication: Hypertension
     Dosage: FORM STRENGTH: 1.25 MILLIGRAM?FREQUENCY TEXT: ONE IN THE MORNING

REACTIONS (5)
  - Insomnia [Recovered/Resolved]
  - Abdominal pain [Recovered/Resolved]
  - Diarrhoea [Recovered/Resolved]
  - Body height decreased [Not Recovered/Not Resolved]
  - Hypophagia [Recovered/Resolved]

NARRATIVE: CASE EVENT DATE: 20170101
